FAERS Safety Report 9021824 (Version 1)
Quarter: 2013Q1

REPORT INFORMATION
  Report Type: Spontaneous
  Country: US (occurrence: US)
  Receive Date: 20130119
  Receipt Date: 20130119
  Transmission Date: 20140127
  Serious: No
  Sender: FDA-Public Use
  Company Number: US-ALLERGAN-1211129US

PATIENT
  Sex: Female

DRUGS (2)
  1. BOTOX? [Suspect]
     Indication: FACIAL SPASM
     Dosage: 50 UNITS, SINGLE
     Route: 030
     Dates: start: 20120502, end: 20120502
  2. BOTOX? [Suspect]
     Indication: VIITH NERVE PARALYSIS

REACTIONS (1)
  - Vision blurred [Recovering/Resolving]
